FAERS Safety Report 10003475 (Version 2)
Quarter: 2014Q1

REPORT INFORMATION
  Report Type: Spontaneous
  Country: US (occurrence: US)
  Receive Date: 20140312
  Receipt Date: 20140312
  Transmission Date: 20141002
  Serious: No
  Sender: FDA-Public Use
  Company Number: US-GILEAD-2012-0061183

PATIENT
  Age: 40 Year
  Sex: Male

DRUGS (10)
  1. LETAIRIS [Suspect]
     Indication: PULMONARY HYPERTENSION
     Dosage: 10 MG, UNK
     Route: 048
     Dates: start: 20110313
  2. LETAIRIS [Suspect]
     Indication: COR PULMONALE CHRONIC
  3. LETAIRIS [Suspect]
     Indication: DRUG ABUSE
  4. LETAIRIS [Suspect]
     Indication: DRUG ABUSE
  5. LETAIRIS [Suspect]
     Indication: DRUG ABUSE
  6. LETAIRIS [Suspect]
     Indication: HEPATITIS C
  7. LETAIRIS [Suspect]
     Indication: HEPATITIS C
  8. LETAIRIS [Suspect]
     Indication: PULMONARY VASCULAR DISORDER
  9. EPOPROSTENOL [Suspect]
     Route: 042
  10. REVATIO [Concomitant]

REACTIONS (3)
  - Pain in jaw [Unknown]
  - Arthralgia [Unknown]
  - Headache [Unknown]
